FAERS Safety Report 10664134 (Version 3)
Quarter: 2014Q4

REPORT INFORMATION
  Report Type: Report from Study
  Country: US (occurrence: US)
  Receive Date: 20141219
  Receipt Date: 20141224
  Transmission Date: 20150529
  Serious: Yes (Hospitalization)
  Sender: FDA-Public Use
  Company Number: PHHO2014US014927

PATIENT
  Age: 65 Year
  Sex: Female
  Weight: 75 kg

DRUGS (2)
  1. BYL719 [Suspect]
     Active Substance: ALPELISIB
     Indication: BREAST CANCER METASTATIC
     Dosage: 300 MG, UNK
     Route: 048
     Dates: start: 20141009, end: 20141104
  2. FEMARA [Suspect]
     Active Substance: LETROZOLE
     Indication: BREAST CANCER METASTATIC
     Dosage: 2.5 MG, UNK
     Route: 048
     Dates: start: 20141009, end: 20141104

REACTIONS (2)
  - Pyrexia [Recovered/Resolved]
  - Hypotension [Recovered/Resolved]

NARRATIVE: CASE EVENT DATE: 20141104
